FAERS Safety Report 20838137 (Version 1)
Quarter: 2022Q2

REPORT INFORMATION
  Report Type: Spontaneous
  Country: US (occurrence: None)
  Receive Date: 20220516
  Receipt Date: 20220516
  Transmission Date: 20220721
  Serious: Yes (Other)
  Sender: FDA-Public Use
  Company Number: None

PATIENT
  Age: 56 Year
  Sex: Female
  Weight: 92.25 kg

DRUGS (16)
  1. BEBTELOVIMAB [Suspect]
     Active Substance: BEBTELOVIMAB
     Indication: COVID-19 treatment
     Dates: start: 20220428, end: 20220428
  2. AMLODIPINE [Concomitant]
     Active Substance: AMLODIPINE BESYLATE
  3. DYAZIDE [Concomitant]
     Active Substance: HYDROCHLOROTHIAZIDE\TRIAMTERENE
  4. METFORMIN [Concomitant]
     Active Substance: METFORMIN HYDROCHLORIDE
  5. LINZESS [Concomitant]
     Active Substance: LINACLOTIDE
  6. VALTREX [Concomitant]
     Active Substance: VALACYCLOVIR HYDROCHLORIDE
  7. AM Niacin Vit C [Concomitant]
  8. VITAMIN B12 [Concomitant]
     Active Substance: CYANOCOBALAMIN
  9. CALCIUM [Concomitant]
     Active Substance: CALCIUM
  10. Monolaurin [Concomitant]
  11. HERBALS\MELISSA OFFICINALIS [Concomitant]
     Active Substance: HERBALS\MELISSA OFFICINALIS
  12. sea moss gummies  PM COQ10 [Concomitant]
  13. MAGNESIUM [Concomitant]
     Active Substance: MAGNESIUM
  14. VITAMIN D3 [Concomitant]
     Active Substance: CHOLECALCIFEROL
  15. ACV gummies [Concomitant]
  16. ASPIRIN [Concomitant]
     Active Substance: ASPIRIN

REACTIONS (11)
  - Incorrect drug administration rate [None]
  - Confusional state [None]
  - Euphoric mood [None]
  - Lethargy [None]
  - Balance disorder [None]
  - Communication disorder [None]
  - Dyschromatopsia [None]
  - Altered visual depth perception [None]
  - Impaired work ability [None]
  - Mental status changes [None]
  - Anxiety [None]

NARRATIVE: CASE EVENT DATE: 20220428
